FAERS Safety Report 24908357 (Version 1)
Quarter: 2025Q1

REPORT INFORMATION
  Report Type: Report from Study
  Country: US (occurrence: US)
  Receive Date: 20250131
  Receipt Date: 20250131
  Transmission Date: 20250409
  Serious: No
  Sender: AMNEAL
  Company Number: US-AMNEAL PHARMACEUTICALS-2024-AMRX-04156

PATIENT
  Sex: Male
  Weight: 128.8 kg

DRUGS (1)
  1. ALYMSYS [Suspect]
     Active Substance: BEVACIZUMAB-MALY
     Indication: Product used for unknown indication
     Route: 042
     Dates: end: 20240910

REACTIONS (1)
  - Wound [Unknown]
